FAERS Safety Report 21990942 (Version 1)
Quarter: 2023Q1

REPORT INFORMATION
  Report Type: Spontaneous
  Country: TN (occurrence: None)
  Receive Date: 20230214
  Receipt Date: 20230214
  Transmission Date: 20230417
  Serious: Yes (Hospitalization, Other)
  Sender: FDA-Public Use
  Company Number: 2023A031766

PATIENT
  Age: 19 Year
  Sex: Male

DRUGS (3)
  1. QUETIAPINE [Suspect]
     Active Substance: QUETIAPINE
     Indication: Schizophrenia
     Route: 048
  2. QUETIAPINE [Suspect]
     Active Substance: QUETIAPINE
     Indication: Schizophrenia
     Route: 048
  3. VALPROIC ACID [Concomitant]
     Active Substance: VALPROIC ACID

REACTIONS (3)
  - Purpura [Recovered/Resolved]
  - Petechiae [Recovered/Resolved]
  - Thrombocytopenia [Recovered/Resolved]
